FAERS Safety Report 5420402-4 (Version None)
Quarter: 2007Q3

REPORT INFORMATION
  Report Type: 
  Country: None (occurrence: None)
  Receive Date: 20070816
  Receipt Date: 20070815
  Transmission Date: 20080115
  Serious: Yes (Other)
  Sender: FDA-Public Use
  Company Number: 654

PATIENT
  Age: 67 Year
  Sex: Female

DRUGS (2)
  1. ACEBUTOLOL HCL [Suspect]
     Dosage: PO
     Route: 048
  2. NEXIUM [Concomitant]

REACTIONS (1)
  - URINE ARSENIC INCREASED [None]
